FAERS Safety Report 5231068-0 (Version None)
Quarter: 2007Q1

REPORT INFORMATION
  Report Type: 
  Country: None (occurrence: None)
  Receive Date: 20070206
  Receipt Date: 20070131
  Transmission Date: 20070707
  Serious: Yes (Other)
  Sender: FDA-Public Use
  Company Number: GB-GLAXOSMITHKLINE-B0398780A

PATIENT
  Sex: Female

DRUGS (5)
  1. SEROXAT [Suspect]
     Indication: DEPRESSION
     Dosage: 20MG PER DAY
     Dates: start: 20030331, end: 20040801
  2. LITHIUM CARBONATE [Concomitant]
     Indication: BIPOLAR DISORDER
  3. OLANZAPINE [Concomitant]
     Indication: BIPOLAR DISORDER
  4. ZOPICLONE [Concomitant]
     Indication: BIPOLAR DISORDER
  5. LAMOTRIGINE [Concomitant]
     Indication: BIPOLAR DISORDER

REACTIONS (3)
  - AGGRESSION [None]
  - COMPLETED SUICIDE [None]
  - DRUG WITHDRAWAL SYNDROME [None]
